FAERS Safety Report 6228362-3 (Version None)
Quarter: 2009Q2

REPORT INFORMATION
  Report Type: 
  Country: None (occurrence: None)
  Receive Date: 20090612
  Receipt Date: 20090602
  Transmission Date: 20091009
  Serious: Yes (Other)
  Sender: FDA-Public Use
  Company Number: US-PFIZER INC-2009173598

PATIENT
  Sex: Female

DRUGS (3)
  1. GEODON [Suspect]
     Dosage: 80 MG, 1X/DAY
     Dates: start: 20081101
  2. ALPRAZOLAM [Suspect]
     Dates: start: 20090101
  3. SEROQUEL [Suspect]

REACTIONS (20)
  - ACTIVITIES OF DAILY LIVING IMPAIRED [None]
  - AGITATION [None]
  - ANOREXIA [None]
  - ANXIETY [None]
  - DEPRESSION [None]
  - ELECTROCARDIOGRAM CHANGE [None]
  - FEAR [None]
  - INFLUENZA LIKE ILLNESS [None]
  - INITIAL INSOMNIA [None]
  - LOSS OF CONSCIOUSNESS [None]
  - MALAISE [None]
  - NERVOUSNESS [None]
  - PANIC REACTION [None]
  - RESTLESSNESS [None]
  - SOMNOLENCE [None]
  - SYNCOPE [None]
  - TREMOR [None]
  - VOMITING [None]
  - WEIGHT DECREASED [None]
  - WITHDRAWAL SYNDROME [None]
